FAERS Safety Report 9411011 (Version 1)
Quarter: 2013Q3

REPORT INFORMATION
  Report Type: Spontaneous
  Country: US (occurrence: US)
  Receive Date: 20130719
  Receipt Date: 20130719
  Transmission Date: 20140515
  Serious: No
  Sender: FDA-Public Use
  Company Number: US-TEVA-418818USA

PATIENT
  Age: 60 Year
  Sex: Male
  Weight: 95.34 kg

DRUGS (8)
  1. QNASL [Suspect]
     Indication: SINUS OPERATION
     Dates: start: 20130626
  2. SIMVASTATIN [Concomitant]
     Indication: BLOOD CHOLESTEROL
  3. PROSCAR [Concomitant]
     Indication: REPRODUCTIVE TRACT DISORDER
  4. AMBIEN [Concomitant]
     Indication: SLEEP DISORDER
  5. ASPIRIN [Concomitant]
  6. DOXYCYCLINE [Concomitant]
     Indication: STAPHYLOCOCCAL INFECTION
  7. PROBIOTICA [Concomitant]
  8. FISH OIL [Concomitant]
     Indication: VITAMIN SUPPLEMENTATION

REACTIONS (2)
  - Parosmia [Not Recovered/Not Resolved]
  - Dysgeusia [Not Recovered/Not Resolved]
